FAERS Safety Report 9006604 (Version 1)
Quarter: 2012Q4

REPORT INFORMATION
  Report Type: Spontaneous
  Country: GB (occurrence: None)
  Receive Date: 20121227
  Receipt Date: 20121227
  Transmission Date: 20130627
  Serious: Yes (Life-Threatening, Hospitalization)
  Sender: FDA-Public Use
  Company Number: 2012-22489

PATIENT
  Age: 77 Year
  Sex: Female

DRUGS (8)
  1. IBUPROFEN (IBUPROFEN) [Suspect]
     Indication: ARTHRALGIA
     Route: 048
     Dates: start: 20040929, end: 20041017
  2. DICLOFENAC (DICLOFENAC) [Suspect]
     Indication: ARTHRALGIA
     Dosage: 50 mg tid, oral
     Dates: start: 20040922, end: 20040929
  3. CELECOXIB [Suspect]
     Indication: ARTHRALGIA
     Route: 048
     Dates: start: 20040910, end: 20040922
  4. AMOXICILLIN [Concomitant]
  5. PARACETAMOL [Concomitant]
  6. TRIMETHOPRIM [Concomitant]
  7. CO-CODAMOL [Concomitant]
  8. CO-DYDRAMOL [Concomitant]

REACTIONS (2)
  - Thrombocytopenia [None]
  - Contusion [None]
